FAERS Safety Report 12337314 (Version 3)
Quarter: 2016Q2

REPORT INFORMATION
  Report Type: Spontaneous
  Country: JP (occurrence: JP)
  Receive Date: 20160505
  Receipt Date: 20160513
  Transmission Date: 20160815
  Serious: Yes (Other)
  Sender: FDA-Public Use
  Company Number: JP-PFIZER INC-2016236813

PATIENT
  Age: 71 Year
  Sex: Male

DRUGS (3)
  1. TEARBALANCE [Concomitant]
     Active Substance: HYALURONATE SODIUM
     Indication: PROPHYLAXIS
     Dosage: 5X/DAY
     Route: 047
     Dates: end: 2014
  2. XALATAN [Suspect]
     Active Substance: LATANOPROST
     Indication: GLAUCOMA
     Dosage: 1 GTT, 1X/DAY
     Route: 047
     Dates: end: 2014
  3. MIKELAN LA [Suspect]
     Active Substance: CARTEOLOL HYDROCHLORIDE
     Indication: GLAUCOMA
     Dosage: 1 GTT, 1X/DAY
     Route: 047
     Dates: end: 2014

REACTIONS (1)
  - Corneal disorder [Recovered/Resolved]
